FAERS Safety Report 5523046-9 (Version None)
Quarter: 2007Q4

REPORT INFORMATION
  Report Type: 
  Country: None (occurrence: None)
  Receive Date: 20071119
  Receipt Date: 20071119
  Transmission Date: 20080405
  Serious: Yes (Hospitalization)
  Sender: FDA-Public Use
  Company Number: None

PATIENT
  Sex: Female
  Weight: 62.8 kg

DRUGS (10)
  1. XELODA [Suspect]
     Dosage: 29150 MG
  2. CAMPTOSAR [Suspect]
     Dosage: 250 MG
  3. ELOXATIN [Suspect]
     Dosage: 170 MG
  4. ATORVASTATIN CALCIUM [Concomitant]
  5. CLONAZEPAM [Concomitant]
  6. FOLATE [Concomitant]
  7. LEVOTHYROXINE SODIUM [Concomitant]
  8. METOPROLOL [Concomitant]
  9. RABEPRAZOLE PM [Concomitant]
  10. VERAPAMIL [Concomitant]

REACTIONS (6)
  - ANOREXIA [None]
  - DEHYDRATION [None]
  - DIARRHOEA [None]
  - FEBRILE NEUTROPENIA [None]
  - NAUSEA [None]
  - ORAL INTAKE REDUCED [None]
